FAERS Safety Report 6222993-2 (Version None)
Quarter: 2009Q2

REPORT INFORMATION
  Report Type: 
  Country: None (occurrence: None)
  Receive Date: 20090609
  Receipt Date: 20090529
  Transmission Date: 20091009
  Serious: Yes (Death)
  Sender: FDA-Public Use
  Company Number: 2009AP002197

PATIENT
  Age: 33 Year
  Sex: Male

DRUGS (4)
  1. LAMOTRIGINE [Suspect]
  2. FLIXONASE (FLUTICASONE ROPIONATE) [Suspect]
  3. OXCARBAZEPINE [Suspect]
  4. VENTOLIN [Suspect]

REACTIONS (1)
  - CARDIOMYOPATHY [None]
